FAERS Safety Report 10052640 (Version 1)
Quarter: 2014Q2

REPORT INFORMATION
  Report Type: Spontaneous
  Country: US (occurrence: US)
  Receive Date: 20140402
  Receipt Date: 20140402
  Transmission Date: 20141212
  Serious: Yes (Other)
  Sender: FDA-Public Use
  Company Number: US-BAYER-2014-049063

PATIENT
  Age: 39 Year
  Sex: Female
  Weight: 80.73 kg

DRUGS (11)
  1. YAZ [Suspect]
  2. YASMIN [Suspect]
  3. ACYCLOVIR [ACICLOVIR] [Concomitant]
     Dosage: 800 MG, UNK
  4. KAPIDEX [Concomitant]
     Dosage: 60 MG, DAILY
  5. XANAX [Concomitant]
     Dosage: 0.25 DAILY
     Route: 048
  6. MIRAPEX [Concomitant]
     Dosage: 0.25 PRN
     Route: 048
  7. AZITHROMYCIN [Concomitant]
     Dosage: 250 MG, UNK
  8. XYZAL [Concomitant]
     Dosage: 5 MG, UNK
  9. MIRTAZAPINE [Concomitant]
     Dosage: 15 MG, UNK
  10. ADVIL [Concomitant]
     Dosage: UNK UNK, PRN
  11. OXYCODONE W/PARACETAMOL [Concomitant]
     Dosage: 5-325 MG

REACTIONS (2)
  - Cholecystitis chronic [None]
  - Deep vein thrombosis [None]
